FAERS Safety Report 8210561-2 (Version None)
Quarter: 2012Q1

REPORT INFORMATION
  Report Type: 
  Country: None (occurrence: None)
  Receive Date: 20120314
  Receipt Date: 20120117
  Transmission Date: 20120608
  Serious: No
  Sender: FDA-Public Use
  Company Number: US-ASTRAZENECA-2012SE00608

PATIENT
  Age: 41 Year
  Sex: Female

DRUGS (1)
  1. TOPROL-XL [Suspect]
     Indication: PANIC ATTACK
     Route: 048

REACTIONS (5)
  - FEELING ABNORMAL [None]
  - DRUG INEFFECTIVE FOR UNAPPROVED INDICATION [None]
  - MALAISE [None]
  - OFF LABEL USE [None]
  - PANIC ATTACK [None]
